FAERS Safety Report 10565218 (Version 1)
Quarter: 2014Q4

REPORT INFORMATION
  Report Type: Spontaneous
  Country: UY (occurrence: None)
  Receive Date: 20141103
  Receipt Date: 20141103
  Transmission Date: 20150529
  Serious: Yes (Life-Threatening)
  Sender: FDA-Public Use
  Company Number: UY-20140003

PATIENT
  Age: 44 Year
  Sex: Female

DRUGS (4)
  1. DOTAREM [Suspect]
     Active Substance: GADOTERATE MEGLUMINE
     Indication: NUCLEAR MAGNETIC RESONANCE IMAGING
     Dosage: 30 ML, 1 IN 1 D INTRAVENOUS ( NOT OTHERWISE SPECIFIED)
     Route: 042
     Dates: start: 20141015, end: 20141015
  2. PREDNISONE. [Concomitant]
     Active Substance: PREDNISONE
  3. WARFARIN [Concomitant]
     Active Substance: WARFARIN
  4. LEVOTHYROXIN [Concomitant]
     Active Substance: LEVOTHYROXINE

REACTIONS (2)
  - Rash [None]
  - Laryngeal oedema [None]

NARRATIVE: CASE EVENT DATE: 20141015
